FAERS Safety Report 15052221 (Version 1)
Quarter: 2018Q2

REPORT INFORMATION
  Report Type: Spontaneous
  Country: US (occurrence: US)
  Receive Date: 20180622
  Receipt Date: 20180622
  Transmission Date: 20180711
  Serious: No
  Sender: FDA-Public Use
  Company Number: US-DENDREON PHARMACEUTICALS LLC-2017DEN000417

PATIENT
  Age: 89 Year
  Sex: Male
  Weight: 63.56 kg

DRUGS (1)
  1. PROVENGE [Suspect]
     Active Substance: SIPULEUCEL-T
     Indication: PROSTATE CANCER
     Dosage: SINGLE
     Route: 042
     Dates: start: 20170602, end: 20170602

REACTIONS (3)
  - Dehydration [Not Recovered/Not Resolved]
  - Abdominal distension [Not Recovered/Not Resolved]
  - Peripheral swelling [Not Recovered/Not Resolved]

NARRATIVE: CASE EVENT DATE: 20170602
